FAERS Safety Report 4335715-7 (Version None)
Quarter: 2004Q1

REPORT INFORMATION
  Report Type: 
  Country: None (occurrence: None)
  Receive Date: 20040329
  Receipt Date: 20040119
  Transmission Date: 20041129
  Serious: No
  Sender: FDA-Public Use
  Company Number: USA031153065

PATIENT
  Age: 9 Year
  Sex: Male
  Weight: 31 kg

DRUGS (1)
  1. STRATTERA [Suspect]
     Indication: ATTENTION DEFICIT/HYPERACTIVITY DISORDER
     Dosage: 25 MG/ IN THE EVENING
     Dates: start: 20030731, end: 20031110

REACTIONS (5)
  - DYSPEPSIA [None]
  - EYE PAIN [None]
  - HEADACHE [None]
  - PRECOCIOUS PUBERTY [None]
  - VOMITING [None]
